FAERS Safety Report 8429012-8 (Version None)
Quarter: 2012Q2

REPORT INFORMATION
  Report Type: 
  Country: None (occurrence: None)
  Receive Date: 20120612
  Receipt Date: 20120531
  Transmission Date: 20120825
  Serious: Yes (Other)
  Sender: FDA-Public Use
  Company Number: CO-JNJFOC-20120601744

PATIENT
  Age: 68 Year
  Sex: Female

DRUGS (4)
  1. REMICADE [Suspect]
     Indication: RHEUMATOID ARTHRITIS
     Route: 042
     Dates: start: 20090504
  2. ACETAMINOPHEN [Concomitant]
     Route: 048
  3. METHOTREXATE [Concomitant]
     Route: 048
  4. CALCITRIOL [Concomitant]
     Route: 048

REACTIONS (3)
  - DIARRHOEA [None]
  - ERYSIPELAS [None]
  - INFLUENZA [None]
